FAERS Safety Report 8393517-9 (Version None)
Quarter: 2012Q2

REPORT INFORMATION
  Report Type: 
  Country: None (occurrence: None)
  Receive Date: 20120529
  Receipt Date: 20120515
  Transmission Date: 20120825
  Serious: Yes (Death, Life-Threatening, Hospitalization, Other)
  Sender: FDA-Public Use
  Company Number: US-MYLANLABS-2008AL010604

PATIENT
  Sex: Male
  Weight: 89.81 kg

DRUGS (18)
  1. COUMADIN [Concomitant]
  2. PRILOSEC [Concomitant]
  3. CABERGOLINE [Concomitant]
  4. LOVENOX [Concomitant]
  5. PROZAC [Concomitant]
  6. METOPROLOL TARTRATE [Concomitant]
  7. PLAVIX [Concomitant]
  8. PROTONIX [Concomitant]
  9. PERGOLIDE MESYLATE [Concomitant]
  10. CALCIUM CITRATE [Concomitant]
  11. NITROGLYCERIN [Concomitant]
  12. PERMAX /00331401/ [Concomitant]
  13. SIMVASTATIN [Concomitant]
  14. ANDROGEL [Concomitant]
  15. DIGOXIN [Suspect]
     Indication: MYOCARDIAL INFARCTION
     Route: 048
     Dates: start: 20070723, end: 20070730
  16. COZAAR [Concomitant]
  17. ASPIRIN [Concomitant]
  18. DIOVAN [Concomitant]

REACTIONS (52)
  - EMOTIONAL DISTRESS [None]
  - LOSS OF EMPLOYMENT [None]
  - ABDOMINAL PAIN UPPER [None]
  - SINUS TACHYCARDIA [None]
  - ACUTE PULMONARY OEDEMA [None]
  - MYOCARDIAL INFARCTION [None]
  - LEFT VENTRICULAR HYPERTROPHY [None]
  - CHEST X-RAY ABNORMAL [None]
  - ELECTROCARDIOGRAM ABNORMAL [None]
  - PALLOR [None]
  - CARDIAC ARREST [None]
  - ATRIAL FIBRILLATION [None]
  - CARDIAC FAILURE CONGESTIVE [None]
  - HYPERTENSION [None]
  - GALLOP RHYTHM PRESENT [None]
  - ARRHYTHMIA [None]
  - FLATULENCE [None]
  - ECHOCARDIOGRAM ABNORMAL [None]
  - THROMBECTOMY [None]
  - PAIN [None]
  - DERMATITIS [None]
  - NAUSEA [None]
  - MYOCARDIAL ISCHAEMIA [None]
  - DYSPNOEA [None]
  - VENTRICULAR ARRHYTHMIA [None]
  - CORONARY ARTERY DISEASE [None]
  - ATELECTASIS [None]
  - ANGIOGRAM ABNORMAL [None]
  - DYSPNOEA EXERTIONAL [None]
  - HEART RATE IRREGULAR [None]
  - TACHYCARDIA [None]
  - ECONOMIC PROBLEM [None]
  - MUSCULOSKELETAL PAIN [None]
  - CORONARY ARTERY THROMBOSIS [None]
  - TOXICITY TO VARIOUS AGENTS [None]
  - ANHEDONIA [None]
  - INJURY [None]
  - CHEST PAIN [None]
  - CARDIOMEGALY [None]
  - LAPAROSCOPIC SURGERY [None]
  - ACUTE CORONARY SYNDROME [None]
  - CORONARY ARTERIAL STENT INSERTION [None]
  - VENTRICULAR EXTRASYSTOLES [None]
  - ILL-DEFINED DISORDER [None]
  - DEATH [None]
  - PULMONARY CONGESTION [None]
  - HEART RATE INCREASED [None]
  - ANEURYSM [None]
  - ISCHAEMIC CARDIOMYOPATHY [None]
  - DYSLIPIDAEMIA [None]
  - LETHARGY [None]
  - TROPONIN INCREASED [None]
